FAERS Safety Report 11751738 (Version 1)
Quarter: 2015Q4

REPORT INFORMATION
  Report Type: Spontaneous
  Country: GB (occurrence: GB)
  Receive Date: 20151118
  Receipt Date: 20151118
  Transmission Date: 20160304
  Serious: Yes (Hospitalization, Other)
  Sender: FDA-Public Use
  Company Number: GB-JNJFOC-20151111131

PATIENT
  Age: 32 Year
  Sex: Male
  Weight: 70 kg

DRUGS (2)
  1. REMICADE [Suspect]
     Active Substance: INFLIXIMAB
     Indication: CROHN^S DISEASE
     Dosage: DOSE: 5 (UNITS UNSPECIFIED)
     Route: 042
  2. COLESEVELAM [Concomitant]
     Active Substance: COLESEVELAM
     Route: 065

REACTIONS (6)
  - Headache [Recovering/Resolving]
  - Circulatory collapse [Recovering/Resolving]
  - Tachycardia [Recovering/Resolving]
  - Hypotension [Recovering/Resolving]
  - Dizziness [Recovering/Resolving]
  - Infusion related reaction [Recovering/Resolving]
